FAERS Safety Report 6743895-9 (Version None)
Quarter: 2010Q2

REPORT INFORMATION
  Report Type: 
  Country: None (occurrence: None)
  Receive Date: 20100527
  Receipt Date: 20100520
  Transmission Date: 20101027
  Serious: Yes (Other)
  Sender: FDA-Public Use
  Company Number: JP-SANOFI-AVENTIS-2010SA029778

PATIENT
  Age: 57 Year
  Sex: Male

DRUGS (2)
  1. SOLOSTAR [Suspect]
     Indication: DRUG USE FOR UNKNOWN INDICATION
  2. LANTUS [Suspect]
     Indication: DRUG USE FOR UNKNOWN INDICATION
     Route: 058

REACTIONS (1)
  - DEVICE MALFUNCTION [None]
